FAERS Safety Report 11540412 (Version 1)
Quarter: 2015Q3

REPORT INFORMATION
  Report Type: Spontaneous
  Country: US (occurrence: US)
  Receive Date: 20150923
  Receipt Date: 20150923
  Transmission Date: 20151125
  Serious: No
  Sender: FDA-Public Use
  Company Number: US-BEH-2014045688

PATIENT
  Age: 65 Year
  Sex: Female
  Weight: 89 kg

DRUGS (19)
  1. PERSANTINE [Concomitant]
     Active Substance: DIPYRIDAMOLE
  2. PRILOSEC [Concomitant]
     Active Substance: OMEPRAZOLE MAGNESIUM
  3. METOPROLOL [Concomitant]
     Active Substance: METOPROLOL
  4. HUMALOG [Concomitant]
     Active Substance: INSULIN LISPRO
  5. IMDUR [Concomitant]
     Active Substance: ISOSORBIDE MONONITRATE
  6. PLAVIX [Concomitant]
     Active Substance: CLOPIDOGREL BISULFATE
  7. ACETAMINOPHEN. [Concomitant]
     Active Substance: ACETAMINOPHEN
  8. PRIVIGEN [Suspect]
     Active Substance: HUMAN IMMUNOGLOBULIN G
     Indication: POLYNEUROPATHY
     Route: 042
     Dates: start: 20141007
  9. ASPIRIN. [Concomitant]
     Active Substance: ASPIRIN
  10. LANTUS [Concomitant]
     Active Substance: INSULIN GLARGINE
  11. LIPITOR [Concomitant]
     Active Substance: ATORVASTATIN CALCIUM
  12. AVAPRO [Concomitant]
     Active Substance: IRBESARTAN
  13. SINGULAIR [Concomitant]
     Active Substance: MONTELUKAST SODIUM
  14. LIDOCAINE. [Concomitant]
     Active Substance: LIDOCAINE
  15. EPIPEN [Concomitant]
     Active Substance: EPINEPHRINE
  16. NITROGLYCERIN. [Concomitant]
     Active Substance: NITROGLYCERIN
  17. ZYRTEC [Concomitant]
     Active Substance: CETIRIZINE HYDROCHLORIDE
  18. DIPHENHYDRAMINE. [Concomitant]
     Active Substance: DIPHENHYDRAMINE
  19. VYTORIN [Concomitant]
     Active Substance: EZETIMIBE\SIMVASTATIN

REACTIONS (3)
  - Infusion site erythema [Not Recovered/Not Resolved]
  - Infusion site swelling [Not Recovered/Not Resolved]
  - Infusion site warmth [Not Recovered/Not Resolved]

NARRATIVE: CASE EVENT DATE: 20141008
